FAERS Safety Report 13079721 (Version 1)
Quarter: 2017Q1

REPORT INFORMATION
  Report Type: Spontaneous
  Country: US (occurrence: US)
  Receive Date: 20170103
  Receipt Date: 20170103
  Transmission Date: 20170428
  Serious: Yes (Other)
  Sender: FDA-Public Use
  Company Number: US-009507513-1612USA015119

PATIENT

DRUGS (2)
  1. INTEGRILIN [Suspect]
     Active Substance: EPTIFIBATIDE
     Indication: THERAPEUTIC PROCEDURE
  2. INTEGRILIN [Suspect]
     Active Substance: EPTIFIBATIDE
     Indication: CARDIOVASCULAR EVENT PROPHYLAXIS
     Dosage: 1 MICROGRAM/KG/MIN, FREQUENCY NOT REPORTED, PROLONGED INFUSION
     Route: 042

REACTIONS (1)
  - Cardiovascular disorder [Unknown]
